FAERS Safety Report 9586070 (Version 2)
Quarter: 2013Q4

REPORT INFORMATION
  Report Type: Report from Study
  Country: US (occurrence: US)
  Receive Date: 20131003
  Receipt Date: 20131009
  Transmission Date: 20140711
  Serious: Yes (Hospitalization)
  Sender: FDA-Public Use
  Company Number: US-JNJFOC-20130915651

PATIENT
  Age: 16 Year
  Sex: Male
  Weight: 57.7 kg

DRUGS (14)
  1. REMICADE [Suspect]
     Indication: CROHN^S DISEASE
     Route: 042
     Dates: start: 20100913, end: 20130108
  2. HUMIRA [Concomitant]
     Indication: CROHN^S DISEASE
     Route: 065
     Dates: start: 20091106, end: 20130119
  3. ACETAMINOPHEN [Concomitant]
     Route: 065
  4. CIMZIA [Concomitant]
     Indication: CROHN^S DISEASE
     Route: 065
     Dates: start: 20130802
  5. CIMZIA [Concomitant]
     Indication: CROHN^S DISEASE
     Route: 065
     Dates: start: 20130719
  6. BUDESONIDE [Concomitant]
     Indication: CROHN^S DISEASE
     Route: 065
  7. METHOTREXATE [Concomitant]
     Indication: CROHN^S DISEASE
     Route: 065
  8. AZATHIOPRINE [Concomitant]
     Indication: CROHN^S DISEASE
     Route: 065
  9. DIPHENHYDRAMINE [Concomitant]
     Route: 065
  10. OXYCODONE [Concomitant]
     Route: 065
  11. MULTIPLE VITAMIN WITH MINERALS [Concomitant]
     Route: 065
  12. ERGOCALCIFEROL [Concomitant]
     Route: 065
  13. OMEPRAZOLE [Concomitant]
     Route: 065
  14. PREDNISONE [Concomitant]
     Indication: CROHN^S DISEASE
     Route: 065

REACTIONS (1)
  - Crohn^s disease [Recovered/Resolved]
